FAERS Safety Report 24380911 (Version 2)
Quarter: 2024Q4

REPORT INFORMATION
  Report Type: Spontaneous
  Country: HU (occurrence: HU)
  Receive Date: 20240930
  Receipt Date: 20241002
  Transmission Date: 20250114
  Serious: Yes (Death, Hospitalization, Other)
  Sender: REGENERON
  Company Number: HU-REGENERON PHARMACEUTICALS, INC.-2024-130921

PATIENT

DRUGS (2)
  1. CEMIPLIMAB [Suspect]
     Active Substance: CEMIPLIMAB
     Indication: Squamous cell carcinoma of skin
     Dosage: UNK
  2. CEMIPLIMAB [Suspect]
     Active Substance: CEMIPLIMAB
     Dosage: UNK

REACTIONS (22)
  - Death [Fatal]
  - Adverse event [Unknown]
  - Pneumothorax [Unknown]
  - Neutropenia [Unknown]
  - Nephritis [Unknown]
  - Type 1 diabetes mellitus [Unknown]
  - Pancreatitis [Unknown]
  - Pneumonitis [Unknown]
  - Colitis [Unknown]
  - Renal impairment [Unknown]
  - Myositis [Unknown]
  - Therapy partial responder [Unknown]
  - Disease progression [Unknown]
  - Toxicity to various agents [Unknown]
  - Immune-mediated adverse reaction [Unknown]
  - Thyroiditis [Unknown]
  - Anaemia [Unknown]
  - Eosinophilia [Unknown]
  - Fatigue [Unknown]
  - Infection [Unknown]
  - Adverse event [Unknown]
  - Skin reaction [Unknown]
